FAERS Safety Report 19911889 (Version 1)
Quarter: 2021Q4

REPORT INFORMATION
  Report Type: Spontaneous
  Country: US (occurrence: US)
  Receive Date: 20211002
  Receipt Date: 20211002
  Transmission Date: 20220303
  Serious: Yes (Life-Threatening)
  Sender: FDA-Public Use
  Company Number: None

PATIENT
  Age: 35 Year
  Sex: Female
  Weight: 52.2 kg

DRUGS (2)
  1. ETESEVIMAB [Suspect]
     Active Substance: ETESEVIMAB
     Indication: COVID-19
     Route: 041
     Dates: start: 20211002, end: 20211002
  2. BAMLANIVIMAB [Suspect]
     Active Substance: BAMLANIVIMAB
     Indication: COVID-19
     Route: 041
     Dates: start: 20211002, end: 20211002

REACTIONS (8)
  - Infusion related reaction [None]
  - Chest discomfort [None]
  - Paraesthesia oral [None]
  - Pharyngeal swelling [None]
  - Flushing [None]
  - Erythema [None]
  - Heart rate increased [None]
  - Anaphylactic reaction [None]

NARRATIVE: CASE EVENT DATE: 20211002
